FAERS Safety Report 8719877 (Version 3)
Quarter: 2012Q4

REPORT INFORMATION
  Report Type: 
  Country: GB (occurrence: GB)
  Receive Date: 20120809
  Receipt Date: 20121101
  Transmission Date: 20130627
  Serious: Yes (Other)
  Sender: FDA-Public Use
  Company Number: GB-ABBOTT-12P-167-0964357-00

PATIENT
  Sex: Male

DRUGS (6)
  1. HUMIRA 40 MG/ 0.8 ML PRE-FILLED SYRINGE [Suspect]
     Indication: PSORIASIS
     Dosage: On hold
     Route: 058
     Dates: start: 20100520
  2. METFORMIN [Concomitant]
     Indication: DIABETES MELLITUS
     Route: 048
  3. OMEPRAZOLE [Concomitant]
     Indication: ABDOMINAL PAIN UPPER
     Route: 048
  4. RAMIPRIL [Concomitant]
     Indication: CARDIAC DISORDER
     Route: 048
  5. LIPITOR [Concomitant]
     Indication: BLOOD CHOLESTEROL
     Dosage: NOCTE
     Route: 048
  6. ASPIRIN [Concomitant]
     Indication: CARDIAC DISORDER
     Dosage: MANE
     Route: 048

REACTIONS (10)
  - Tympanic membrane perforation [Not Recovered/Not Resolved]
  - Inner ear disorder [Unknown]
  - Tooth extraction [Unknown]
  - Dental operation [Unknown]
  - Ear pain [Unknown]
  - Ear infection [Unknown]
  - Fungal infection [Not Recovered/Not Resolved]
  - Ear pain [Not Recovered/Not Resolved]
  - Ear canal injury [Not Recovered/Not Resolved]
  - Hypoacusis [Not Recovered/Not Resolved]
